FAERS Safety Report 23428608 (Version 1)
Quarter: 2024Q1

REPORT INFORMATION
  Report Type: Report from Study
  Country: US (occurrence: US)
  Receive Date: 20240122
  Receipt Date: 20240122
  Transmission Date: 20240410
  Serious: No
  Sender: FDA-Public Use
  Company Number: US-AGIOS-2401US03606

PATIENT
  Sex: Male

DRUGS (3)
  1. MITAPIVAT [Suspect]
     Active Substance: MITAPIVAT
     Indication: Product used for unknown indication
     Dosage: 20 MILLIGRAM
     Route: 048
     Dates: start: 20220726
  2. PENICILLIN [Suspect]
     Active Substance: PENICILLIN
     Indication: Malaise
     Dosage: EVERYDAY
  3. PENICILLIN [Suspect]
     Active Substance: PENICILLIN
     Indication: Oropharyngeal pain

REACTIONS (2)
  - Oropharyngeal pain [Recovered/Resolved]
  - Malaise [Recovered/Resolved]
